FAERS Safety Report 24344639 (Version 1)
Quarter: 2024Q3

REPORT INFORMATION
  Report Type: Spontaneous
  Country: CN (occurrence: CN)
  Receive Date: 20240920
  Receipt Date: 20240920
  Transmission Date: 20241017
  Serious: Yes (Life-Threatening, Hospitalization, Other)
  Sender: GLAXOSMITHKLINE
  Company Number: CN-GLAXOSMITHKLINE-CN2024APC114482

PATIENT

DRUGS (5)
  1. LAMOTRIGINE [Suspect]
     Active Substance: LAMOTRIGINE
     Indication: Affective disorder
     Dosage: 30 DF, QD
     Route: 048
     Dates: start: 20240909, end: 20240909
  2. VALPROATE MAGNESIUM [Suspect]
     Active Substance: VALPROATE MAGNESIUM
     Indication: Affective disorder
     Dosage: 30 DF, QD SUSTAINED-RELEASE TABLET
     Route: 048
     Dates: start: 20240909, end: 20240909
  3. LORAZEPAM [Suspect]
     Active Substance: LORAZEPAM
     Indication: Affective disorder
     Dosage: 20 DF, QD
     Route: 048
     Dates: start: 20240909, end: 20240909
  4. QUETIAPINE FUMARATE [Suspect]
     Active Substance: QUETIAPINE FUMARATE
     Indication: Affective disorder
     Dosage: 30 DF, QD EXTENDED-RELEASE TABLETS
     Route: 048
     Dates: start: 20240909, end: 20240909
  5. CLONAZEPAM [Suspect]
     Active Substance: CLONAZEPAM
     Indication: Affective disorder
     Dosage: 20 DF, QD
     Route: 048
     Dates: start: 20240909, end: 20240909

REACTIONS (5)
  - Altered state of consciousness [Recovered/Resolved]
  - Loss of consciousness [Recovered/Resolved]
  - Unresponsive to stimuli [Recovering/Resolving]
  - Blood pressure decreased [Recovering/Resolving]
  - Intentional overdose [Unknown]

NARRATIVE: CASE EVENT DATE: 20240909
